FAERS Safety Report 18510203 (Version 5)
Quarter: 2020Q4

REPORT INFORMATION
  Report Type: Spontaneous
  Country: PL (occurrence: PL)
  Receive Date: 20201117
  Receipt Date: 20201221
  Transmission Date: 20210114
  Serious: Yes (Hospitalization, Other)
  Sender: FDA-Public Use
  Company Number: PL-MYLANLABS-2020M1093870

PATIENT
  Age: 32 Year
  Sex: Female

DRUGS (10)
  1. OMEPRAZOLE. [Interacting]
     Active Substance: OMEPRAZOLE
     Dosage: 40 MILLIGRAM
  2. SERTRALINE [Interacting]
     Active Substance: SERTRALINE HYDROCHLORIDE
     Dosage: 50 MG, DAILY (50 MG IN THE MORNING)
     Route: 048
  3. ITOPRIDE HYDROCHLORIDE [Interacting]
     Active Substance: ITOPRIDE HYDROCHLORIDE
     Dosage: 150 MILLIGRAM
     Route: 048
  4. HYDROXYZINE [Suspect]
     Active Substance: HYDROXYZINE HYDROCHLORIDE
     Indication: DEPRESSION
     Dosage: 75 MILLIGRAM, QD (25 MG, 3X/DAY)
     Route: 065
  5. SERTRALINE [Suspect]
     Active Substance: SERTRALINE HYDROCHLORIDE
     Indication: DEPRESSION
     Dosage: 100 MG, DAILY
     Route: 048
  6. SERTRALINE [Interacting]
     Active Substance: SERTRALINE HYDROCHLORIDE
     Dosage: UNK
  7. ITOPRIDE HYDROCHLORIDE [Interacting]
     Active Substance: ITOPRIDE HYDROCHLORIDE
     Dosage: 100 MILLIGRAM, QD (50 MG, 2X/DAY)
     Route: 048
  8. OMEPRAZOLE. [Interacting]
     Active Substance: OMEPRAZOLE
     Indication: DYSPEPSIA
     Dosage: 40 MILLIGRAM, QD
     Route: 065
  9. ITOPRIDE HYDROCHLORIDE [Interacting]
     Active Substance: ITOPRIDE HYDROCHLORIDE
     Indication: DYSPEPSIA
     Dosage: 150 MILLIGRAM, QD (50 MG, 3X/DAY)
     Route: 048
  10. PARACETAMOL [Suspect]
     Active Substance: ACETAMINOPHEN
     Indication: HEADACHE
     Dosage: 4 GRAM, QD (UP TO 4 G PER DAY)
     Route: 065

REACTIONS (11)
  - Depression [Unknown]
  - Therapeutic product effect incomplete [Unknown]
  - Asthenia [Unknown]
  - Headache [Recovering/Resolving]
  - Nausea [Recovered/Resolved]
  - Constipation [Recovered/Resolved]
  - Somnolence [Unknown]
  - Gastric disorder [Recovering/Resolving]
  - Drug interaction [Unknown]
  - Dyspepsia [Recovered/Resolved]
  - Paraesthesia [Recovered/Resolved]
